FAERS Safety Report 4854745-X (Version None)
Quarter: 2005Q4

REPORT INFORMATION
  Report Type: 
  Country: None (occurrence: None)
  Receive Date: 20051215
  Receipt Date: 20051214
  Transmission Date: 20060501
  Serious: Yes (Other)
  Sender: FDA-Public Use
  Company Number: US-GLAXOSMITHKLINE-A0585878A

PATIENT
  Age: 15 Year
  Sex: Female

DRUGS (3)
  1. AMERGE [Suspect]
     Indication: MIGRAINE
     Dosage: 2.5MG SINGLE DOSE
     Route: 048
     Dates: start: 20051212
  2. TRILEPTAL [Concomitant]
  3. ZOLOFT [Concomitant]

REACTIONS (4)
  - DEPRESSION [None]
  - ENERGY INCREASED [None]
  - LOGORRHOEA [None]
  - MANIA [None]
